FAERS Safety Report 9342424 (Version 2)
Quarter: 2013Q2

REPORT INFORMATION
  Report Type: Spontaneous
  Country: ES (occurrence: ES)
  Receive Date: 20130611
  Receipt Date: 20130620
  Transmission Date: 20140414
  Serious: Yes (Other)
  Sender: FDA-Public Use
  Company Number: PHHY2013ES058682

PATIENT
  Age: 83 Year
  Sex: Male

DRUGS (2)
  1. ACENOCOUMAROL [Suspect]
     Dosage: UNK IN THE AFTERNOON
  2. LOSARTAN [Interacting]
     Dosage: 100 MG, IN THE MORNING

REACTIONS (2)
  - Drug interaction [Recovering/Resolving]
  - Blood pressure systolic abnormal [Recovered/Resolved]
